FAERS Safety Report 23272764 (Version 1)
Quarter: 2023Q4

REPORT INFORMATION
  Report Type: Spontaneous
  Country: US (occurrence: None)
  Receive Date: 20231206
  Receipt Date: 20231206
  Transmission Date: 20240110
  Serious: Yes (unspecified)
  Sender: FDA-Public Use
  Company Number: None

PATIENT
  Age: 67 Year
  Sex: Female
  Weight: 48.6 kg

DRUGS (3)
  1. PRALUENT [Suspect]
     Active Substance: ALIROCUMAB
     Indication: Hyperlipidaemia
     Dosage: FREQUENCY : WEEKLY;?
     Route: 058
     Dates: start: 20230606
  2. PRALUENT [Suspect]
     Active Substance: ALIROCUMAB
     Indication: Drug intolerance
  3. PRALUENT [Suspect]
     Active Substance: ALIROCUMAB
     Indication: Coronary artery disease

REACTIONS (2)
  - Bone demineralisation [None]
  - Tenosynovitis [None]

NARRATIVE: CASE EVENT DATE: 20231107
